FAERS Safety Report 8283857-6 (Version None)
Quarter: 2012Q2

REPORT INFORMATION
  Report Type: 
  Country: None (occurrence: None)
  Receive Date: 20120413
  Receipt Date: 20120113
  Transmission Date: 20120825
  Serious: No
  Sender: FDA-Public Use
  Company Number: US-ASTRAZENECA-2011SE72865

PATIENT
  Age: 19 Year
  Sex: Male

DRUGS (1)
  1. NEXIUM [Suspect]
     Route: 048

REACTIONS (10)
  - SCHIZOPHRENIA [None]
  - EATING DISORDER [None]
  - FEELING ABNORMAL [None]
  - COW'S MILK INTOLERANCE [None]
  - RETCHING [None]
  - PAIN [None]
  - BIPOLAR DISORDER [None]
  - VOMITING [None]
  - DRUG DOSE OMISSION [None]
  - DYSPEPSIA [None]
